FAERS Safety Report 13761358 (Version 2)
Quarter: 2017Q3

REPORT INFORMATION
  Report Type: Spontaneous
  Country: BR (occurrence: BR)
  Receive Date: 20170717
  Receipt Date: 20170727
  Transmission Date: 20171127
  Serious: Yes (Hospitalization)
  Sender: FDA-Public Use
  Company Number: BR-009507513-1707BRA002592

PATIENT
  Sex: Female
  Weight: 75 kg

DRUGS (3)
  1. VYTORIN [Suspect]
     Active Substance: EZETIMIBE\SIMVASTATIN
     Indication: BLOOD CHOLESTEROL INCREASED
     Dosage: 1 TABLET, DAILY
     Route: 048
     Dates: start: 2007, end: 2014
  2. VYTORIN [Suspect]
     Active Substance: EZETIMIBE\SIMVASTATIN
     Dosage: 1 TABLET, DAILY
     Route: 048
     Dates: start: 201706
  3. VYTORIN [Suspect]
     Active Substance: EZETIMIBE\SIMVASTATIN
     Indication: BLOOD CHOLESTEROL INCREASED
     Dosage: 1 TABLET, DAILY
     Route: 048
     Dates: start: 2014, end: 201706

REACTIONS (4)
  - Vascular calcification [Recovered/Resolved]
  - Overweight [Unknown]
  - Chest pain [Recovered/Resolved]
  - Angiogram abnormal [Recovered/Resolved]

NARRATIVE: CASE EVENT DATE: 2017
